FAERS Safety Report 4877154-6 (Version None)
Quarter: 2005Q4

REPORT INFORMATION
  Report Type: 
  Country: None (occurrence: None)
  Receive Date: 20051206
  Receipt Date: 20051020
  Transmission Date: 20060501
  Serious: No
  Sender: FDA-Public Use
  Company Number: USA0508105556

PATIENT
  Age: 57 Year
  Sex: Female

DRUGS (3)
  1. CYMBALTA [Suspect]
     Dosage: 90 MG DAY
     Dates: start: 20050425
  2. PROZAC [Concomitant]
  3. PAXIL [Concomitant]

REACTIONS (2)
  - BREAST ENGORGEMENT [None]
  - GALACTORRHOEA [None]
